FAERS Safety Report 6980621-2 (Version None)
Quarter: 2010Q3

REPORT INFORMATION
  Report Type: 
  Country: None (occurrence: None)
  Receive Date: 20100826
  Receipt Date: 20090630
  Transmission Date: 20110219
  Serious: No
  Sender: FDA-Public Use
  Company Number: 2009-00282

PATIENT
  Age: 44 Year
  Sex: Male
  Weight: 122.4712 kg

DRUGS (1)
  1. ZICAM COLD REMEDY GEL SWABS [Suspect]
     Dosage: SPORADIC X 2 MONTHS
     Dates: start: 20090101, end: 20090301

REACTIONS (1)
  - ANOSMIA [None]
